FAERS Safety Report 9212074 (Version 1)
Quarter: 2013Q2

REPORT INFORMATION
  Report Type: Spontaneous
  Country: US (occurrence: US)
  Receive Date: 20130404
  Receipt Date: 20130404
  Transmission Date: 20140414
  Serious: No
  Sender: FDA-Public Use
  Company Number: US-AMGEN-USASP2013020733

PATIENT
  Age: 39 Year
  Sex: Male

DRUGS (1)
  1. ENBREL [Suspect]
     Indication: PSORIASIS
     Dosage: 50 MG, QWK
     Dates: start: 20130310

REACTIONS (6)
  - Nausea [Recovered/Resolved]
  - Dysgeusia [Not Recovered/Not Resolved]
  - Dizziness [Recovered/Resolved]
  - Injection site pain [Not Recovered/Not Resolved]
  - Psoriasis [Not Recovered/Not Resolved]
  - Paraesthesia [Recovered/Resolved]
